FAERS Safety Report 14486015 (Version 2)
Quarter: 2018Q1

REPORT INFORMATION
  Report Type: Report from Study
  Country: AT (occurrence: AT)
  Receive Date: 20180205
  Receipt Date: 20180215
  Transmission Date: 20180509
  Serious: Yes (Hospitalization, Disabling)
  Sender: FDA-Public Use
  Company Number: AT-CELGENEUS-AUT-20180111073

PATIENT
  Age: 79 Year
  Sex: Female
  Weight: 150 kg

DRUGS (7)
  1. NOMEXOR [Concomitant]
     Active Substance: NEBIVOLOL HYDROCHLORIDE
     Indication: HYPERTENSION
     Route: 048
  2. LISINOPRIL. [Concomitant]
     Active Substance: LISINOPRIL
     Indication: HYPERTENSION
     Route: 048
  3. VENETOCLAX. [Concomitant]
     Active Substance: VENETOCLAX
     Indication: ACUTE MYELOID LEUKAEMIA
     Route: 065
  4. AGAFFIN [Concomitant]
     Indication: CONSTIPATION PROPHYLAXIS
     Dosage: 3.4286 MILLILITER
     Route: 048
     Dates: start: 201702
  5. ALLOPURINOL. [Concomitant]
     Active Substance: ALLOPURINOL
     Indication: PROPHYLAXIS
     Dosage: 300 MILLIGRAM
     Route: 048
     Dates: start: 2013
  6. AZACITIDINE. [Suspect]
     Active Substance: AZACITIDINE
     Indication: ACUTE MYELOID LEUKAEMIA
     Dosage: 75 MILLIGRAM/SQ. METER
     Route: 058
  7. XIPAMIDE [Concomitant]
     Active Substance: XIPAMIDE
     Indication: PROPHYLAXIS
     Dosage: .4286 TABLET
     Route: 048
     Dates: start: 201702

REACTIONS (1)
  - Cerebrovascular accident [Not Recovered/Not Resolved]

NARRATIVE: CASE EVENT DATE: 20180121
